FAERS Safety Report 4564568-7 (Version None)
Quarter: 2005Q1

REPORT INFORMATION
  Report Type: 
  Country: None (occurrence: None)
  Receive Date: 20050126
  Receipt Date: 20050118
  Transmission Date: 20050727
  Serious: Yes (Death, Life-Threatening, Hospitalization)
  Sender: FDA-Public Use
  Company Number: F01200500101

PATIENT
  Age: 65 Year
  Sex: Male

DRUGS (8)
  1. (OXALIPLATIN) - SOLUTION - 190 MG [Suspect]
     Indication: COLORECTAL CANCER METASTATIC
     Dosage: 190 MG Q3W INTRAVENOUS
     Route: 042
     Dates: start: 20041117, end: 20041117
  2. (CAPECITABINE) - TABLET - 1800 MG [Suspect]
     Dosage: 1800 MG TWICE A DAY FROM DAY 1 TO DAY 15, Q3W ORAL
     Route: 048
     Dates: start: 20041117, end: 20041201
  3. SPERSADEXOLINE (CHLORAMPHENICOL/DEXAMETHASONE SODIUM PHOSPHATE/TETRAHY [Concomitant]
  4. ACETAMINOPHEN [Concomitant]
  5. DOXYFENE (ACETAMINOPHEN/PROPOXYPHENE HYDROCHLORIDE) [Concomitant]
  6. IBUPROFEN [Concomitant]
  7. NORMACOL (BASSORIN/FRANGULA/STERCULIA) [Concomitant]
  8. DULCOLAX [Concomitant]

REACTIONS (9)
  - ASTHENIA [None]
  - CONFUSIONAL STATE [None]
  - DEHYDRATION [None]
  - DISEASE PROGRESSION [None]
  - HEPATIC FAILURE [None]
  - MENTAL IMPAIRMENT [None]
  - METASTASES TO LIVER [None]
  - PYREXIA [None]
  - THROMBOCYTOPENIA [None]
